FAERS Safety Report 18073648 (Version 2)
Quarter: 2020Q3

REPORT INFORMATION
  Report Type: Spontaneous
  Country: GB (occurrence: GB)
  Receive Date: 20200727
  Receipt Date: 20200811
  Transmission Date: 20201103
  Serious: Yes (Hospitalization, Other)
  Sender: FDA-Public Use
  Company Number: GB-MYLANLABS-2020M1066313

PATIENT
  Age: 75 Year
  Sex: Male

DRUGS (8)
  1. CLEXANE [Suspect]
     Active Substance: ENOXAPARIN SODIUM
     Indication: THROMBOSIS PROPHYLAXIS
     Dosage: UNK
     Dates: start: 2013, end: 20190405
  2. CLEXANE [Suspect]
     Active Substance: ENOXAPARIN SODIUM
     Dosage: 100 MG, QD (2 SEPARATE DOSES
     Route: 058
     Dates: start: 20190410
  3. LACTULOSE. [Concomitant]
     Active Substance: LACTULOSE
     Dosage: UNK UNK, BID(3.4G/5ML SOLUTION)
     Route: 048
  4. DOXAZOSIN [Suspect]
     Active Substance: DOXAZOSIN MESYLATE
     Indication: HORMONE-REFRACTORY PROSTATE CANCER
     Dosage: 4 MG, QD
     Route: 048
     Dates: start: 2013
  5. DEXAMETHASONE. [Suspect]
     Active Substance: DEXAMETHASONE
     Indication: HORMONE-REFRACTORY PROSTATE CANCER
     Dosage: 0.5 MG, QD
     Route: 048
     Dates: start: 2015
  6. LANSOPRAZOLE. [Suspect]
     Active Substance: LANSOPRAZOLE
     Indication: HORMONE-REFRACTORY PROSTATE CANCER
     Dosage: 30 MG, QD
     Route: 048
     Dates: start: 2015
  7. PARACETAMOL [Suspect]
     Active Substance: ACETAMINOPHEN
     Indication: PAIN
     Dosage: 1 G
     Route: 048
     Dates: start: 20170606
  8. TAMSULOSIN [Suspect]
     Active Substance: TAMSULOSIN
     Indication: HORMONE-REFRACTORY PROSTATE CANCER
     Dosage: 400 MG, QD
     Route: 048
     Dates: start: 2006

REACTIONS (9)
  - Haematuria [Recovered/Resolved]
  - Venous thrombosis limb [Unknown]
  - Product use in unapproved indication [Unknown]
  - Haemoglobin decreased [Unknown]
  - Hydronephrosis [Unknown]
  - Blood disorder [Unknown]
  - Intentional product misuse [Unknown]
  - Adrenocortical insufficiency acute [Unknown]
  - Staphylococcal infection [Unknown]

NARRATIVE: CASE EVENT DATE: 201904
